FAERS Safety Report 8162246-9 (Version None)
Quarter: 2012Q1

REPORT INFORMATION
  Report Type: 
  Country: None (occurrence: None)
  Receive Date: 20120221
  Receipt Date: 20120203
  Transmission Date: 20120608
  Serious: Yes (Hospitalization)
  Sender: FDA-Public Use
  Company Number: JPI-P-019696

PATIENT
  Age: 50 Year
  Sex: Female
  Weight: 67.1324 kg

DRUGS (7)
  1. METHYLPHENIDATE HCL [Concomitant]
  2. XYREM [Suspect]
     Indication: SOMNOLENCE
     Dosage: 4.5 GM (2.25 GM,2 IN 1 D),ORAL,  9 GM (4.5 GM,2 IN 1 D),ORAL
     Route: 048
     Dates: start: 20100629
  3. XYREM [Suspect]
     Indication: NARCOLEPSY
     Dosage: 4.5 GM (2.25 GM,2 IN 1 D),ORAL,  9 GM (4.5 GM,2 IN 1 D),ORAL
     Route: 048
     Dates: start: 20100629
  4. XYREM [Suspect]
     Indication: SOMNOLENCE
     Dosage: 4.5 GM (2.25 GM,2 IN 1 D),ORAL,  9 GM (4.5 GM,2 IN 1 D),ORAL
     Route: 048
     Dates: start: 20100610, end: 20100601
  5. XYREM [Suspect]
     Indication: NARCOLEPSY
     Dosage: 4.5 GM (2.25 GM,2 IN 1 D),ORAL,  9 GM (4.5 GM,2 IN 1 D),ORAL
     Route: 048
     Dates: start: 20100610, end: 20100601
  6. XYREM [Suspect]
     Indication: SOMNOLENCE
     Dosage: 4.5 GM (2.25 GM,2 IN 1 D),ORAL,  9 GM (4.5 GM,2 IN 1 D),ORAL
     Route: 048
     Dates: start: 20100601, end: 20100101
  7. XYREM [Suspect]
     Indication: NARCOLEPSY
     Dosage: 4.5 GM (2.25 GM,2 IN 1 D),ORAL,  9 GM (4.5 GM,2 IN 1 D),ORAL
     Route: 048
     Dates: start: 20100601, end: 20100101

REACTIONS (8)
  - VOMITING [None]
  - NAUSEA [None]
  - HEADACHE [None]
  - INTERVERTEBRAL DISC PROTRUSION [None]
  - BLINDNESS [None]
  - PRURITUS GENERALISED [None]
  - CEREBROVASCULAR ACCIDENT [None]
  - EYE INJURY [None]
